FAERS Safety Report 7149378-9 (Version None)
Quarter: 2010Q4

REPORT INFORMATION
  Report Type: 
  Country: None (occurrence: None)
  Receive Date: 20101209
  Receipt Date: 20100928
  Transmission Date: 20110411
  Serious: No
  Sender: FDA-Public Use
  Company Number: US-KINGPHARMUSA00001-K201001223

PATIENT
  Age: 49 Year
  Sex: Female
  Weight: 99.773 kg

DRUGS (8)
  1. EMBEDA [Suspect]
     Indication: BACK PAIN
     Dosage: 30 MG, UNK
     Route: 048
     Dates: start: 20100401, end: 20100701
  2. EMBEDA [Suspect]
     Dosage: 50 MG, 1-2 TABLETS EVERY 8 HRS
     Route: 048
     Dates: start: 20100701
  3. AMITIZA [Suspect]
     Indication: IRRITABLE BOWEL SYNDROME
     Dosage: UNK
     Route: 048
     Dates: start: 20100601
  4. KEPPRA [Concomitant]
     Indication: CONVULSION
     Route: 048
  5. NEURONTIN [Concomitant]
     Indication: NEUROPATHY PERIPHERAL
     Dosage: UNK
     Route: 048
     Dates: start: 20100101
  6. NEURONTIN [Concomitant]
     Indication: CONVULSION
  7. PRILOSEC [Concomitant]
     Indication: GASTROOESOPHAGEAL REFLUX DISEASE
     Route: 048
  8. KLONOPIN [Concomitant]
     Dosage: UNK, TID
     Route: 048

REACTIONS (3)
  - DRUG INEFFECTIVE [None]
  - MEDICATION RESIDUE [None]
  - PROCTALGIA [None]
